FAERS Safety Report 23670715 (Version 1)
Quarter: 2024Q1

REPORT INFORMATION
  Report Type: Spontaneous
  Country: DE (occurrence: DE)
  Receive Date: 20240326
  Receipt Date: 20240326
  Transmission Date: 20240409
  Serious: Yes (Other)
  Sender: FDA-Public Use
  Company Number: None

PATIENT
  Sex: Male

DRUGS (11)
  1. IBUPROFEN [Suspect]
     Active Substance: IBUPROFEN
     Indication: Pain
     Dosage: UNK
  2. PREGABALIN [Suspect]
     Active Substance: PREGABALIN
     Indication: Pain
     Dosage: UNK
  3. NALOXONE HYDROCHLORIDE\OXYCODONE HYDROCHLORIDE [Suspect]
     Active Substance: NALOXONE HYDROCHLORIDE\OXYCODONE HYDROCHLORIDE
     Indication: Pain
     Dosage: UP TO 100-120 MG BID
     Route: 048
     Dates: start: 2018
  4. ACETAMINOPHEN [Suspect]
     Active Substance: ACETAMINOPHEN
     Indication: Pain
     Dosage: UNK
  5. CANNABIS SATIVA SUBSP. INDICA TOP [Suspect]
     Active Substance: CANNABIS SATIVA SUBSP. INDICA TOP
     Indication: Neuralgia
     Dosage: MOUTH SPRAY
     Route: 048
     Dates: start: 2021
  6. OXYCODONE [Suspect]
     Active Substance: OXYCODONE\OXYCODONE HYDROCHLORIDE
     Indication: Pain
     Dosage: STRENGTH 40 MG
     Dates: start: 202006
  7. OXYCODONE [Suspect]
     Active Substance: OXYCODONE\OXYCODONE HYDROCHLORIDE
     Dosage: STRENGTH 10 MG
     Dates: start: 202012
  8. OXYCODONE [Suspect]
     Active Substance: OXYCODONE\OXYCODONE HYDROCHLORIDE
     Dosage: STRENGTH 20 MG
  9. CLONIDINE [Concomitant]
     Active Substance: CLONIDINE
     Indication: Product used for unknown indication
     Dosage: UNK
  10. METAMIZOLE [Concomitant]
     Active Substance: METAMIZOLE
     Indication: Product used for unknown indication
     Dosage: PRN (ON AN AS NEEDED-BASE)
  11. NAPROXEN [Concomitant]
     Active Substance: NAPROXEN
     Indication: Prophylaxis against gastrointestinal ulcer

REACTIONS (13)
  - Hyperhidrosis [Recovering/Resolving]
  - Drug dependence [Recovered/Resolved]
  - Somnolence [Recovering/Resolving]
  - Loss of libido [Recovering/Resolving]
  - Drug withdrawal maintenance therapy [Unknown]
  - Malaise [Recovering/Resolving]
  - Drug withdrawal syndrome [Recovering/Resolving]
  - Decreased activity [Recovering/Resolving]
  - Labelled drug-drug interaction issue [Unknown]
  - Inadequate analgesia [Unknown]
  - Gastrointestinal disorder [Recovering/Resolving]
  - Social problem [Recovering/Resolving]
  - Impaired quality of life [Recovering/Resolving]
